FAERS Safety Report 6685238-5 (Version None)
Quarter: 2010Q2

REPORT INFORMATION
  Report Type: 
  Country: None (occurrence: None)
  Receive Date: 20100416
  Receipt Date: 20100408
  Transmission Date: 20101027
  Serious: Yes (Death, Hospitalization, Other)
  Sender: FDA-Public Use
  Company Number: US-AMGEN-KDL292437

PATIENT
  Sex: Female

DRUGS (2)
  1. ENBREL [Suspect]
     Indication: PSORIASIS
     Route: 058
     Dates: start: 20060405
  2. AMBIEN [Concomitant]
     Route: 048

REACTIONS (12)
  - ARTHRALGIA [None]
  - BARRETT'S OESOPHAGUS [None]
  - DEATH [None]
  - FATIGUE [None]
  - GESTATIONAL DIABETES [None]
  - HAEMOGLOBIN DECREASED [None]
  - INCREASED TENDENCY TO BRUISE [None]
  - JOINT SWELLING [None]
  - OSTEOARTHRITIS [None]
  - PREMATURE LABOUR [None]
  - REFLUX OESOPHAGITIS [None]
  - WEIGHT INCREASED [None]
